FAERS Safety Report 4510867-4 (Version None)
Quarter: 2004Q4

REPORT INFORMATION
  Report Type: 
  Country: None (occurrence: None)
  Receive Date: 20041025
  Receipt Date: 20030903
  Transmission Date: 20050328
  Serious: Yes (Hospitalization)
  Sender: FDA-Public Use
  Company Number: NSADSS2003002548

PATIENT
  Age: 86 Year
  Sex: Female
  Weight: 68.0396 kg

DRUGS (20)
  1. REMICADE [Suspect]
     Indication: PSORIATIC ARTHROPATHY
     Dosage: 198 MG, INTRAVENOUS DRIP
     Route: 041
     Dates: start: 20010813
  2. REMICADE [Suspect]
     Indication: RHEUMATOID ARTHRITIS
     Dosage: 198 MG, INTRAVENOUS DRIP
     Route: 041
     Dates: start: 20010813
  3. REMICADE [Suspect]
     Indication: PSORIATIC ARTHROPATHY
     Dosage: 198 MG, INTRAVENOUS DRIP
     Route: 041
     Dates: start: 20010827
  4. REMICADE [Suspect]
     Indication: RHEUMATOID ARTHRITIS
     Dosage: 198 MG, INTRAVENOUS DRIP
     Route: 041
     Dates: start: 20010827
  5. REMICADE [Suspect]
     Indication: PSORIATIC ARTHROPATHY
     Dosage: 198 MG, INTRAVENOUS DRIP
     Route: 041
     Dates: start: 20010924
  6. REMICADE [Suspect]
     Indication: RHEUMATOID ARTHRITIS
     Dosage: 198 MG, INTRAVENOUS DRIP
     Route: 041
     Dates: start: 20010924
  7. REMICADE [Suspect]
     Indication: PSORIATIC ARTHROPATHY
     Dosage: 198 MG, INTRAVENOUS DRIP
     Route: 041
     Dates: start: 20020528
  8. REMICADE [Suspect]
     Indication: RHEUMATOID ARTHRITIS
     Dosage: 198 MG, INTRAVENOUS DRIP
     Route: 041
     Dates: start: 20020528
  9. REMICADE [Suspect]
     Indication: PSORIATIC ARTHROPATHY
     Dosage: 198 MG, INTRAVENOUS DRIP
     Route: 041
     Dates: start: 20021213
  10. REMICADE [Suspect]
     Indication: RHEUMATOID ARTHRITIS
     Dosage: 198 MG, INTRAVENOUS DRIP
     Route: 041
     Dates: start: 20021213
  11. HYALGAN (HYALURONIC ACID) [Concomitant]
  12. LOTENSIN (BENZEPRIL HYDROCHLORIDE) [Concomitant]
  13. ZOCOR [Concomitant]
  14. TYLENOL [Concomitant]
  15. FOSAMAX [Concomitant]
  16. AUROLATE (SODIUM AUROTHIOMALATE) [Concomitant]
  17. METHOTREXATE [Concomitant]
  18. MOBIC [Concomitant]
  19. ACETYLSALICYLIC ACID SRT [Concomitant]
  20. NORVASC [Concomitant]

REACTIONS (8)
  - BLOOD PRESSURE INCREASED [None]
  - BURSITIS [None]
  - CONDITION AGGRAVATED [None]
  - COUGH [None]
  - FATIGUE [None]
  - OSTEOPOROSIS [None]
  - PSORIASIS [None]
  - RASH MACULAR [None]
